FAERS Safety Report 16740320 (Version 3)
Quarter: 2019Q4

REPORT INFORMATION
  Report Type: Spontaneous
  Country: US (occurrence: US)
  Receive Date: 20190826
  Receipt Date: 20191003
  Transmission Date: 20200122
  Serious: No
  Sender: FDA-Public Use
  Company Number: US-PFIZER INC-2019354519

PATIENT
  Age: 94 Year
  Sex: Female

DRUGS (1)
  1. CLEOCIN [Suspect]
     Active Substance: CLINDAMYCIN PHOSPHATE
     Dosage: UNK

REACTIONS (12)
  - Dyspnoea [Unknown]
  - Malaise [Unknown]
  - Sleep disorder [Unknown]
  - Vomiting [Not Recovered/Not Resolved]
  - Limb discomfort [Unknown]
  - Tooth fracture [Unknown]
  - Tooth discolouration [Unknown]
  - Skin exfoliation [Unknown]
  - Vulvovaginal swelling [Not Recovered/Not Resolved]
  - Swelling [Not Recovered/Not Resolved]
  - Diarrhoea [Not Recovered/Not Resolved]
  - Vaginal disorder [Unknown]
